FAERS Safety Report 8133843-1 (Version None)
Quarter: 2012Q1

REPORT INFORMATION
  Report Type: 
  Country: None (occurrence: None)
  Receive Date: 20120213
  Receipt Date: 20120202
  Transmission Date: 20120608
  Serious: Yes (Other)
  Sender: FDA-Public Use
  Company Number: US-ASTRAZENECA-2011SE00160

PATIENT
  Age: 85 Year
  Sex: Female

DRUGS (6)
  1. ACCOLATE [Suspect]
     Route: 048
  2. PULMICORT [Suspect]
     Indication: ASTHMA PROPHYLAXIS
     Route: 055
  3. ADVAIR DISKUS 100/50 [Concomitant]
  4. SYMBICORT [Suspect]
     Route: 055
  5. CRESTOR [Suspect]
     Route: 048
  6. PREDNISONE TAB [Concomitant]

REACTIONS (13)
  - PAIN [None]
  - WHEEZING [None]
  - INCORRECT DOSE ADMINISTERED [None]
  - SPINAL FRACTURE [None]
  - ASTHMA [None]
  - HEARING IMPAIRED [None]
  - DIABETES MELLITUS [None]
  - FALL [None]
  - DRUG INTOLERANCE [None]
  - CONFUSIONAL STATE [None]
  - COUGH [None]
  - DRUG DOSE OMISSION [None]
  - DYSPHONIA [None]
